FAERS Safety Report 5845914-0 (Version None)
Quarter: 2008Q3

REPORT INFORMATION
  Report Type: 
  Country: None (occurrence: None)
  Receive Date: 20080814
  Receipt Date: 20080807
  Transmission Date: 20090109
  Serious: Yes (Hospitalization, Other)
  Sender: FDA-Public Use
  Company Number: US-ELI_LILLY_AND_COMPANY-US200807000573

PATIENT
  Sex: Male
  Weight: 145.58 kg

DRUGS (12)
  1. BYETTA [Suspect]
     Indication: TYPE 2 DIABETES MELLITUS
     Dosage: 5 UG, UNKNOWN
     Route: 058
     Dates: start: 20080501, end: 20080601
  2. BYETTA [Suspect]
     Dosage: 10 UG, UNKNOWN
     Route: 058
     Dates: start: 20080601, end: 20080701
  3. BYETTA [Suspect]
     Dosage: 5 UG, UNKNOWN
     Route: 058
     Dates: start: 20080701
  4. AMARYL [Concomitant]
     Dosage: 4 MG, UNK
     Route: 048
  5. METFORMIN HCL [Concomitant]
     Dosage: 500 MG, UNK
     Route: 048
  6. DIOVAN [Concomitant]
     Dosage: 80 MG, UNK
     Route: 048
  7. LASIX [Concomitant]
     Dosage: UNK, UNKNOWN
  8. TRICOR [Concomitant]
     Dosage: 145 MG, UNK
     Route: 048
  9. LIPITOR [Concomitant]
     Dosage: 10 MG, UNK
     Route: 048
  10. LANTUS [Concomitant]
     Dosage: 20 U, UNK
     Route: 058
  11. LISINOPRIL [Concomitant]
     Dosage: 2.5 MG, UNK
     Route: 048
  12. FISH OIL [Concomitant]
     Dosage: UNK, 2/D
     Route: 048

REACTIONS (7)
  - BLOOD CALCIUM DECREASED [None]
  - BLOOD TRIGLYCERIDES INCREASED [None]
  - BLOOD UREA INCREASED [None]
  - HEPATIC STEATOSIS [None]
  - HEPATOSPLENOMEGALY [None]
  - PANCREATITIS [None]
  - WEIGHT DECREASED [None]
